FAERS Safety Report 15204298 (Version 2)
Quarter: 2018Q3

REPORT INFORMATION
  Report Type: Spontaneous
  Country: US (occurrence: US)
  Receive Date: 20180726
  Receipt Date: 20180827
  Transmission Date: 20181010
  Serious: Yes (Hospitalization)
  Sender: FDA-Public Use
  Company Number: US-VERTEX PHARMACEUTICALS-2018-005119

PATIENT
  Age: 16 Year
  Sex: Female

DRUGS (5)
  1. FLOXIN                             /00239102/ [Concomitant]
  2. URSODIOL. [Concomitant]
     Active Substance: URSODIOL
  3. SYMDEKO [Suspect]
     Active Substance: IVACAFTOR\TEZACAFTOR
     Indication: CYSTIC FIBROSIS
     Dosage: 100MG TEZACAFTOR/150MG IVACAFTOR AM; 150MG IVACAFTOR PM
     Route: 048
     Dates: start: 20180226
  4. PREDNISONE                         /00044702/ [Concomitant]
     Active Substance: PREDNISONE
  5. CALCITRATE [Concomitant]
     Active Substance: CALCIUM CITRATE

REACTIONS (1)
  - Infection [Not Recovered/Not Resolved]

NARRATIVE: CASE EVENT DATE: 201807
